FAERS Safety Report 11239346 (Version 1)
Quarter: 2015Q3

REPORT INFORMATION
  Report Type: Spontaneous
  Country: US (occurrence: US)
  Receive Date: 20150706
  Receipt Date: 20150706
  Transmission Date: 20151125
  Serious: No
  Sender: FDA-Public Use
  Company Number: US-TEVA-556275USA

PATIENT
  Age: 51 Year
  Sex: Female

DRUGS (1)
  1. DICLOXACILLIN [Suspect]
     Active Substance: DICLOXACILLIN
     Indication: INFECTION
     Route: 048
     Dates: start: 20150410, end: 20150414

REACTIONS (3)
  - Swelling face [Unknown]
  - Pruritus generalised [Unknown]
  - Hypersensitivity [Unknown]

NARRATIVE: CASE EVENT DATE: 201504
